FAERS Safety Report 9689253 (Version 4)
Quarter: 2013Q4

REPORT INFORMATION
  Report Type: Report from Study
  Country: CA (occurrence: CA)
  Receive Date: 20131114
  Receipt Date: 20131219
  Transmission Date: 20140711
  Serious: Yes (Death, Other)
  Sender: FDA-Public Use
  Company Number: CA-ROCHE-1221614

PATIENT
  Sex: Female
  Weight: 68 kg

DRUGS (28)
  1. RITUXAN [Suspect]
     Indication: BEHCET^S SYNDROME
     Route: 042
     Dates: start: 20100405, end: 20131114
  2. RITUXAN [Suspect]
     Indication: OFF LABEL USE
     Route: 042
     Dates: start: 20120924
  3. RITUXAN [Suspect]
     Route: 042
     Dates: start: 20130508
  4. RITUXAN [Suspect]
     Route: 042
     Dates: start: 20131106
  5. KEFLEX [Suspect]
     Indication: PRODUCT USED FOR UNKNOWN INDICATION
     Route: 065
  6. PREDNISONE [Suspect]
     Indication: PRODUCT USED FOR UNKNOWN INDICATION
     Route: 065
  7. PREDNISONE [Suspect]
     Dosage: EVERY DAY TO TAPPER OFF
     Route: 065
  8. PREDNISONE [Suspect]
     Dosage: DAILY
     Route: 065
  9. DIPHENHYDRAMINE HCL [Concomitant]
     Route: 048
     Dates: start: 20100405
  10. METHYLPREDNISOLONE [Concomitant]
     Route: 042
     Dates: start: 20100405
  11. ACETAMINOPHEN [Concomitant]
     Route: 048
     Dates: start: 20100419
  12. CALCIUM CARBONATE [Concomitant]
  13. METHOTREXATE [Concomitant]
     Dosage: 8 TABLET WEEKLY
     Route: 058
  14. ACTONEL [Concomitant]
  15. METFORMIN [Concomitant]
  16. SPIRIVA [Concomitant]
  17. ADVAIR [Concomitant]
  18. PREMARIN [Concomitant]
  19. CRESTOR [Concomitant]
  20. VENLAFAXINE [Concomitant]
  21. PLAVIX [Concomitant]
  22. FOLIC ACID [Concomitant]
     Dosage: EVERY DAY
     Route: 048
  23. PANTOLOC [Concomitant]
  24. SLOW-K [Concomitant]
  25. CITALOPRAM [Concomitant]
  26. TYLENOL [Concomitant]
     Route: 048
     Dates: start: 20100419, end: 20131114
  27. BENADRYL (CANADA) [Concomitant]
     Route: 048
     Dates: start: 20100505, end: 20131114
  28. SOLU-MEDROL [Concomitant]
     Route: 042
     Dates: start: 20100405, end: 20131114

REACTIONS (14)
  - Lung infection [Fatal]
  - Drug hypersensitivity [Unknown]
  - Eye pain [Not Recovered/Not Resolved]
  - Headache [Not Recovered/Not Resolved]
  - Localised infection [Recovered/Resolved]
  - Dyspnoea [Unknown]
  - Ocular vasculitis [Recovering/Resolving]
  - Urinary tract infection [Recovered/Resolved]
  - Respiratory tract congestion [Not Recovered/Not Resolved]
  - Lower respiratory tract infection [Not Recovered/Not Resolved]
  - Skin discolouration [Not Recovered/Not Resolved]
  - Weight decreased [Not Recovered/Not Resolved]
  - Bronchitis [Recovering/Resolving]
  - Off label use [Unknown]
